FAERS Safety Report 21825000 (Version 2)
Quarter: 2023Q1

REPORT INFORMATION
  Report Type: Spontaneous
  Country: SI (occurrence: SI)
  Receive Date: 20230105
  Receipt Date: 20230118
  Transmission Date: 20230417
  Serious: Yes (Other)
  Sender: FDA-Public Use
  Company Number: SI-TEVA-2022-SI-2842284

PATIENT
  Age: 6 Decade
  Sex: Female

DRUGS (13)
  1. MYCOPHENOLATE MOFETIL [Suspect]
     Active Substance: MYCOPHENOLATE MOFETIL
     Indication: Gingivitis ulcerative
     Dosage: 2 GRAM DAILY;
     Route: 065
     Dates: start: 2012
  2. MYCOPHENOLATE MOFETIL [Suspect]
     Active Substance: MYCOPHENOLATE MOFETIL
     Indication: Pemphigus
  3. METHYLPREDNISOLONE [Suspect]
     Active Substance: METHYLPREDNISOLONE
     Indication: Gingivitis ulcerative
     Dosage: 52 MILLIGRAM DAILY;
     Route: 065
     Dates: start: 201207
  4. METHYLPREDNISOLONE [Suspect]
     Active Substance: METHYLPREDNISOLONE
     Indication: Pemphigus
  5. RITUXIMAB [Suspect]
     Active Substance: RITUXIMAB
     Indication: Gingivitis ulcerative
     Dosage: 4 INFUSIONS OF RITUXIMAB 375 MG/M 2 WEEKLY
     Route: 065
     Dates: start: 201507
  6. RITUXIMAB [Suspect]
     Active Substance: RITUXIMAB
     Indication: Pemphigus
  7. AZATHIOPRINE [Concomitant]
     Active Substance: AZATHIOPRINE
     Indication: Gingivitis ulcerative
     Dosage: 100 MILLIGRAM DAILY;
     Route: 065
     Dates: start: 201207
  8. AZATHIOPRINE [Concomitant]
     Active Substance: AZATHIOPRINE
     Indication: Pemphigus
  9. TRIAMCINOLONE ACETONIDE [Concomitant]
     Active Substance: TRIAMCINOLONE ACETONIDE
     Indication: Gingivitis ulcerative
     Route: 065
     Dates: start: 201207
  10. TRIAMCINOLONE ACETONIDE [Concomitant]
     Active Substance: TRIAMCINOLONE ACETONIDE
     Indication: Pemphigus
  11. DEXAMETHASONE [Concomitant]
     Active Substance: DEXAMETHASONE
     Indication: Gingivitis ulcerative
     Dosage: 1MG/ML; 3 TIMES A DAY; ORAL RINSE
     Route: 061
  12. DEXAMETHASONE [Concomitant]
     Active Substance: DEXAMETHASONE
     Indication: Pemphigus
  13. ARTICAINE HYDROCHLORIDE [Concomitant]
     Active Substance: ARTICAINE HYDROCHLORIDE
     Indication: Local anaesthesia
     Route: 065
     Dates: start: 201207

REACTIONS (4)
  - Genital herpes [Unknown]
  - B-lymphocyte count decreased [Unknown]
  - Drug ineffective [Unknown]
  - Off label use [Unknown]
